FAERS Safety Report 9422935 (Version 3)
Quarter: 2014Q1

REPORT INFORMATION
  Report Type: Report from Study
  Country: CA (occurrence: CA)
  Receive Date: 20130726
  Receipt Date: 20140328
  Transmission Date: 20141002
  Serious: Yes (Other)
  Sender: FDA-Public Use
  Company Number: CA-JNJFOC-20130714532

PATIENT
  Age: 48 Year
  Sex: Male
  Weight: 75 kg

DRUGS (2)
  1. REMICADE [Suspect]
     Indication: ANKYLOSING SPONDYLITIS
     Dosage: 21 INFUSIONS TILL THE TIME OF THIS REPORT
     Route: 042
     Dates: start: 20100429
  2. REMICADE [Suspect]
     Indication: CROHN^S DISEASE
     Dosage: 21 INFUSIONS TILL THE TIME OF THIS REPORT
     Route: 042
     Dates: start: 20100429

REACTIONS (1)
  - Thrombosis [Recovered/Resolved]
